FAERS Safety Report 20900569 (Version 1)
Quarter: 2022Q2

REPORT INFORMATION
  Report Type: Spontaneous
  Country: CA (occurrence: CA)
  Receive Date: 20220601
  Receipt Date: 20220601
  Transmission Date: 20220721
  Serious: Yes (Other)
  Sender: FDA-Public Use
  Company Number: CA-NOVARTISPH-NVSC2022CA123507

PATIENT
  Age: 53 Year
  Sex: Female

DRUGS (77)
  1. BUPROPION [Suspect]
     Active Substance: BUPROPION
     Indication: Urticaria
     Dosage: UNK
     Route: 065
  2. CODEINE PHOSPHATE [Suspect]
     Active Substance: CODEINE PHOSPHATE
     Indication: Pruritus
     Dosage: UNK
     Route: 065
  3. MOXIFLOXACIN [Suspect]
     Active Substance: MOXIFLOXACIN
     Indication: Rash
     Dosage: UNK
     Route: 065
  4. CIPROFLOXACIN [Suspect]
     Active Substance: CIPROFLOXACIN
     Indication: Urticaria
     Dosage: UNK
     Route: 065
  5. CIPROFLOXACIN [Suspect]
     Active Substance: CIPROFLOXACIN
     Dosage: UNK
     Route: 065
  6. KETAMINE [Suspect]
     Active Substance: KETAMINE
     Indication: Hallucination
     Dosage: UNK
     Route: 065
  7. BREO ELLIPTA [Suspect]
     Active Substance: FLUTICASONE FUROATE\VILANTEROL TRIFENATATE
     Indication: Product used for unknown indication
     Dosage: 1 UNK, QD
     Route: 055
  8. SULFAMETHOXAZOLE\TRIMETHOPRIM [Suspect]
     Active Substance: SULFAMETHOXAZOLE\TRIMETHOPRIM
     Indication: Stomatitis
     Dosage: UNK
     Route: 065
  9. ALBUTEROL [Suspect]
     Active Substance: ALBUTEROL
     Indication: Product used for unknown indication
     Dosage: UNK
     Route: 055
  10. ALBUTEROL [Suspect]
     Active Substance: ALBUTEROL
     Dosage: UNK
     Route: 065
  11. ALBUTEROL [Suspect]
     Active Substance: ALBUTEROL
     Dosage: 2 DOSAGE FORM
     Route: 065
  12. NITROGLYCERIN [Suspect]
     Active Substance: NITROGLYCERIN
     Indication: Oesophageal spasm
     Dosage: UNK
     Route: 065
  13. VIOXX [Suspect]
     Active Substance: ROFECOXIB
     Indication: Urticaria
     Dosage: UNK
     Route: 065
  14. CLOPIDOGREL [Suspect]
     Active Substance: CLOPIDOGREL BISULFATE
     Indication: Anticoagulant therapy
     Dosage: 1 DOSAGE FORM, QD
     Route: 065
  15. CEFUROXIME AXETIL [Suspect]
     Active Substance: CEFUROXIME AXETIL
     Indication: Diarrhoea
     Dosage: UNK
     Route: 065
  16. CEFUROXIME AXETIL [Suspect]
     Active Substance: CEFUROXIME AXETIL
     Indication: Fatigue
     Dosage: UNK
     Route: 065
  17. CEFUROXIME AXETIL [Suspect]
     Active Substance: CEFUROXIME AXETIL
     Indication: Malaise
     Dosage: UNK
     Route: 065
  18. CYPROHEPTADINE HYDROCHLORIDE [Suspect]
     Active Substance: CYPROHEPTADINE HYDROCHLORIDE
     Indication: Urticaria
     Dosage: UNK
     Route: 065
  19. FERROUS GLUCONATE [Suspect]
     Active Substance: FERROUS GLUCONATE
     Indication: Iron deficiency
     Dosage: UNK
     Route: 065
  20. NITROFURANTOIN [Suspect]
     Active Substance: NITROFURANTOIN
     Indication: Cystitis
     Dosage: UNK
     Route: 065
  21. FLOVENT [Suspect]
     Active Substance: FLUTICASONE PROPIONATE
     Indication: Chronic obstructive pulmonary disease
     Dosage: UNK
     Route: 065
  22. FLOVENT [Suspect]
     Active Substance: FLUTICASONE PROPIONATE
     Indication: Asthma
     Dosage: 1 DOSAGE FORM, BID
     Route: 065
  23. CODEINE [Suspect]
     Active Substance: CODEINE
     Indication: Pruritus
     Dosage: UNK
     Route: 065
  24. CODEINE [Suspect]
     Active Substance: CODEINE
     Dosage: UNK
     Route: 065
  25. POTASSIUM CHLORIDE [Suspect]
     Active Substance: POTASSIUM CHLORIDE
     Indication: Product used for unknown indication
     Dosage: 3 DOSAGE FORM, QD
     Route: 065
  26. POTASSIUM CHLORIDE [Suspect]
     Active Substance: POTASSIUM CHLORIDE
     Dosage: 1 DOSAGE FORM, (1 EVERY 8 HOUR)
     Route: 065
  27. WELLBUTRIN [Suspect]
     Active Substance: BUPROPION HYDROCHLORIDE
     Indication: Urticaria
     Dosage: UNK
     Route: 065
  28. CEPHALEXIN [Suspect]
     Active Substance: CEPHALEXIN
     Indication: Dizziness
     Dosage: UNK
     Route: 065
  29. CEPHALEXIN [Suspect]
     Active Substance: CEPHALEXIN
     Indication: Vomiting
     Dosage: UNK
     Route: 065
  30. CEPHALEXIN [Suspect]
     Active Substance: CEPHALEXIN
     Indication: Malaise
     Dosage: UNK
     Route: 065
  31. NITROGLYCERIN [Suspect]
     Active Substance: NITROGLYCERIN
     Indication: Oesophageal spasm
     Dosage: UNK
     Route: 065
  32. ACETAMINOPHEN [Suspect]
     Active Substance: ACETAMINOPHEN
     Indication: Pruritus
     Dosage: UNK
     Route: 065
  33. ACETAMINOPHEN [Suspect]
     Active Substance: ACETAMINOPHEN
     Dosage: UNK
     Route: 065
  34. ACETAMINOPHEN [Suspect]
     Active Substance: ACETAMINOPHEN
     Dosage: UNK
     Route: 065
  35. CAFFEINE [Suspect]
     Active Substance: CAFFEINE
     Indication: Pruritus
     Dosage: UNK
     Route: 065
  36. ALENDRONATE SODIUM [Suspect]
     Active Substance: ALENDRONATE SODIUM
     Indication: Osteoporosis
     Dosage: 1 DOSAGE FORM, QW, (0.1429 DF)
     Route: 065
  37. ALENDRONATE SODIUM [Suspect]
     Active Substance: ALENDRONATE SODIUM
     Indication: Menopause
     Dosage: 1 DOSAGE FORM, QD
     Route: 065
  38. ALENDRONATE SODIUM [Suspect]
     Active Substance: ALENDRONATE SODIUM
     Indication: Osteoporosis postmenopausal
     Dosage: UNK
     Route: 065
  39. ALENDRONATE SODIUM [Suspect]
     Active Substance: ALENDRONATE SODIUM
     Dosage: 1 DOSAGE FORM, QD
     Route: 065
  40. ALENDRONATE SODIUM [Suspect]
     Active Substance: ALENDRONATE SODIUM
     Dosage: 1 DOSAGE FORM, QD
     Route: 065
  41. VITAMIN D3 [Suspect]
     Active Substance: CHOLECALCIFEROL
     Indication: Osteoporosis
     Dosage: UNK
     Route: 065
  42. VITAMIN D3 [Suspect]
     Active Substance: CHOLECALCIFEROL
     Indication: Menopausal symptoms
     Dosage: 1 DOSAGE FORM, QW
     Route: 065
  43. VITAMIN D3 [Suspect]
     Active Substance: CHOLECALCIFEROL
     Dosage: 1 DOSAGE FORM, QD
     Route: 065
  44. AMITRIPTYLINE [Suspect]
     Active Substance: AMITRIPTYLINE
     Indication: Depression
     Dosage: UNK
     Route: 065
  45. FUROSEMIDE [Suspect]
     Active Substance: FUROSEMIDE
     Indication: Fluid retention
     Dosage: UNK
     Route: 065
  46. ATROVENT HFA [Suspect]
     Active Substance: IPRATROPIUM BROMIDE
     Indication: Product used for unknown indication
     Dosage: UNK
     Route: 065
  47. ATROVENT HFA [Suspect]
     Active Substance: IPRATROPIUM BROMIDE
     Dosage: UNK, (METERED DOSE)
     Route: 065
  48. CELEBREX [Suspect]
     Active Substance: CELECOXIB
     Indication: Abdominal pain upper
     Dosage: UNK
     Route: 065
  49. CELEBREX [Suspect]
     Active Substance: CELECOXIB
     Indication: Oesophageal pain
     Dosage: UNK
     Route: 065
  50. CYMBALTA [Suspect]
     Active Substance: DULOXETINE HYDROCHLORIDE
     Indication: Anxiety
     Dosage: 1 DOSAGE FORM, QD
     Route: 065
  51. CYMBALTA [Suspect]
     Active Substance: DULOXETINE HYDROCHLORIDE
     Indication: Depression
     Dosage: UNK UNK, QD
     Route: 065
  52. GABAPENTIN [Suspect]
     Active Substance: GABAPENTIN
     Indication: Product used for unknown indication
     Dosage: UNK
     Route: 065
  53. GRAVOL [Suspect]
     Active Substance: DIMENHYDRINATE
     Indication: Anxiety
     Dosage: UNK
     Route: 065
  54. INDOMETHACIN [Suspect]
     Active Substance: INDOMETHACIN
     Indication: Abdominal pain upper
     Dosage: UNK
     Route: 065
  55. INDOMETHACIN [Suspect]
     Active Substance: INDOMETHACIN
     Indication: Vision blurred
     Dosage: UNK
     Route: 065
  56. INDOMETHACIN [Suspect]
     Active Substance: INDOMETHACIN
     Indication: Vomiting
     Dosage: UNK
     Route: 065
  57. INSULIN ASPART [Suspect]
     Active Substance: INSULIN ASPART
     Indication: Type 2 diabetes mellitus
     Dosage: UNK
     Route: 065
  58. NAPROXEN SODIUM [Suspect]
     Active Substance: NAPROXEN SODIUM
     Indication: Pruritus
     Dosage: UNK
     Route: 065
  59. PENICILLIN G [Suspect]
     Active Substance: PENICILLIN G
     Indication: Product used for unknown indication
     Dosage: UNK
     Route: 065
  60. PERINDOPRIL [Suspect]
     Active Substance: PERINDOPRIL
     Indication: Blood pressure abnormal
     Dosage: UNK
     Route: 065
  61. PREDNISONE [Suspect]
     Active Substance: PREDNISONE
     Indication: Product used for unknown indication
     Dosage: UNK
     Route: 065
  62. SENOKOT [Suspect]
     Active Substance: SENNOSIDES
     Indication: Abdominal pain
     Dosage: UNK
     Route: 065
  63. TIOTROPIUM BROMIDE [Suspect]
     Active Substance: TIOTROPIUM BROMIDE
     Indication: Product used for unknown indication
     Dosage: UNK
     Route: 065
  64. NOVORAPID [Suspect]
     Active Substance: INSULIN ASPART
     Indication: Type 2 diabetes mellitus
     Dosage: UNK
     Route: 058
  65. NOVORAPID [Suspect]
     Active Substance: INSULIN ASPART
     Dosage: UNK
     Route: 065
  66. ALBUTEROL [Suspect]
     Active Substance: ALBUTEROL
     Indication: Product used for unknown indication
     Dosage: 2 DOSAGE FORM
     Route: 065
  67. ALEVE [Suspect]
     Active Substance: NAPROXEN SODIUM
     Indication: Pruritus
     Dosage: UNK
     Route: 065
  68. PERINDOPRIL [Suspect]
     Active Substance: PERINDOPRIL
     Indication: Blood pressure measurement
     Dosage: 1 DOSAGE FORM, QD
     Route: 065
  69. FOSAVANCE [Suspect]
     Active Substance: ALENDRONATE SODIUM\CHOLECALCIFEROL
     Indication: Osteoporosis postmenopausal
     Dosage: 1 DOSAGE FORM, QW
     Route: 065
  70. INDOMETHACIN [Suspect]
     Active Substance: INDOMETHACIN
     Indication: Abdominal pain upper
     Dosage: UNK
     Route: 065
  71. INDOMETHACIN [Suspect]
     Active Substance: INDOMETHACIN
     Indication: Vision blurred
     Dosage: UNK
     Route: 065
  72. INDOMETHACIN [Suspect]
     Active Substance: INDOMETHACIN
     Indication: Vomiting
     Dosage: UNK
     Route: 065
  73. TYLENOL [Suspect]
     Active Substance: ACETAMINOPHEN
     Indication: Pruritus
     Dosage: UNK
     Route: 065
  74. INDOMETHACIN SODIUM [Suspect]
     Active Substance: INDOMETHACIN SODIUM
     Indication: Abdominal pain upper
     Dosage: UNK
     Route: 065
  75. INDOMETHACIN SODIUM [Suspect]
     Active Substance: INDOMETHACIN SODIUM
     Indication: Vision blurred
     Dosage: UNK
     Route: 005
  76. INDOMETHACIN SODIUM [Suspect]
     Active Substance: INDOMETHACIN SODIUM
     Indication: Vomiting
     Dosage: UNK
     Route: 005
  77. VITAMIN D3 [Suspect]
     Active Substance: CHOLECALCIFEROL
     Indication: Osteoporosis postmenopausal
     Dosage: UNK
     Route: 065

REACTIONS (30)
  - Myocardial infarction [Not Recovered/Not Resolved]
  - Migraine [Not Recovered/Not Resolved]
  - Hyperhidrosis [Not Recovered/Not Resolved]
  - Bronchitis [Not Recovered/Not Resolved]
  - Vision blurred [Not Recovered/Not Resolved]
  - Feeling abnormal [Not Recovered/Not Resolved]
  - Pneumonia [Not Recovered/Not Resolved]
  - Urticaria [Not Recovered/Not Resolved]
  - Pruritus [Not Recovered/Not Resolved]
  - Malaise [Not Recovered/Not Resolved]
  - Sleep apnoea syndrome [Not Recovered/Not Resolved]
  - Oesophageal spasm [Not Recovered/Not Resolved]
  - Fatigue [Not Recovered/Not Resolved]
  - Fibromyalgia [Not Recovered/Not Resolved]
  - Fluid retention [Not Recovered/Not Resolved]
  - Lymphoedema [Not Recovered/Not Resolved]
  - Oesophageal pain [Not Recovered/Not Resolved]
  - Cystitis [Not Recovered/Not Resolved]
  - Diarrhoea [Not Recovered/Not Resolved]
  - Abdominal pain upper [Not Recovered/Not Resolved]
  - Stomatitis [Not Recovered/Not Resolved]
  - Rash [Not Recovered/Not Resolved]
  - Abdominal pain [Not Recovered/Not Resolved]
  - Agitation [Not Recovered/Not Resolved]
  - Hallucination [Not Recovered/Not Resolved]
  - Vomiting [Not Recovered/Not Resolved]
  - Tinnitus [Not Recovered/Not Resolved]
  - Depression [Not Recovered/Not Resolved]
  - Anxiety [Not Recovered/Not Resolved]
  - Dizziness [Not Recovered/Not Resolved]
